FAERS Safety Report 13567277 (Version 1)
Quarter: 2017Q2

REPORT INFORMATION
  Report Type: Spontaneous
  Country: US (occurrence: US)
  Receive Date: 20170522
  Receipt Date: 20170522
  Transmission Date: 20170830
  Serious: Yes (Life-Threatening, Other)
  Sender: FDA-Public Use
  Company Number: US-AUROBINDO-AUR-APL-2017-32183

PATIENT
  Age: 74 Year
  Sex: Male
  Weight: 76 kg

DRUGS (8)
  1. ZICONOTIDE [Suspect]
     Active Substance: ZICONOTIDE
     Indication: BACK PAIN
     Dosage: 0.6 MCG/H, UNK
     Route: 037
  2. PROPOFOL. [Suspect]
     Active Substance: PROPOFOL
     Indication: MAINTENANCE OF ANAESTHESIA
     Dosage: UP TO 200MG IN DIVIDED DOSES
     Route: 042
  3. LIDOCAINE. [Suspect]
     Active Substance: LIDOCAINE
     Indication: GENERAL ANAESTHESIA
     Route: 042
  4. FENTANYL. [Suspect]
     Active Substance: FENTANYL
     Indication: MAINTENANCE OF ANAESTHESIA
     Dosage: 100 MCG, UNK
     Route: 042
  5. METOPROLOL. [Suspect]
     Active Substance: METOPROLOL
     Indication: HYPERTENSION
     Route: 048
  6. LIDOCAINE. [Suspect]
     Active Substance: LIDOCAINE
     Indication: MAINTENANCE OF ANAESTHESIA
     Dosage: 60 MG, UNK
     Route: 042
  7. PROPOFOL. [Suspect]
     Active Substance: PROPOFOL
     Indication: GENERAL ANAESTHESIA
     Dosage: DIVIDED DOSES
     Route: 042
  8. SUCCINYLCHOLINE CHLORIDE. [Suspect]
     Active Substance: SUCCINYLCHOLINE CHLORIDE
     Indication: MAINTENANCE OF ANAESTHESIA
     Dosage: 120 MG, UNK
     Route: 042

REACTIONS (2)
  - Hypotension [Recovering/Resolving]
  - Vasoplegia syndrome [Unknown]
